FAERS Safety Report 16579530 (Version 4)
Quarter: 2020Q1

REPORT INFORMATION
  Report Type: Report from Study
  Country: US (occurrence: US)
  Receive Date: 20190716
  Receipt Date: 20200218
  Transmission Date: 20200409
  Serious: Yes (Hospitalization)
  Sender: FDA-Public Use
  Company Number: US-ACTELION-A-NJ2019-189145

PATIENT
  Age: 44 Year
  Sex: Female
  Weight: 60.77 kg

DRUGS (6)
  1. IRON [Concomitant]
     Active Substance: IRON
  2. LEXAPRO [Concomitant]
     Active Substance: ESCITALOPRAM OXALATE
  3. SILDENAFIL CITRATE. [Concomitant]
     Active Substance: SILDENAFIL CITRATE
  4. VITAMIN B12 [Concomitant]
     Active Substance: CYANOCOBALAMIN
  5. VELETRI [Suspect]
     Active Substance: EPOPROSTENOL
     Indication: PULMONARY HYPERTENSION
     Dosage: 40 NG/KG, PER MIN
     Route: 042
  6. OPSUMIT [Suspect]
     Active Substance: MACITENTAN
     Indication: PULMONARY HYPERTENSION
     Dosage: 10 MG, QD
     Route: 048
     Dates: start: 20160114

REACTIONS (9)
  - Abdominal pain [Unknown]
  - Hypotension [Unknown]
  - Colectomy [Unknown]
  - Pain in jaw [Unknown]
  - Diarrhoea [Unknown]
  - Pain in extremity [Unknown]
  - Nausea [Unknown]
  - Gastrointestinal inflammation [Unknown]
  - Gastrointestinal disorder [Recovered/Resolved]

NARRATIVE: CASE EVENT DATE: 20190702
